FAERS Safety Report 21689994 (Version 1)
Quarter: 2022Q4

REPORT INFORMATION
  Report Type: Spontaneous
  Country: FR (occurrence: FR)
  Receive Date: 20221206
  Receipt Date: 20221206
  Transmission Date: 20230113
  Serious: Yes (Hospitalization, Other)
  Sender: FDA-Public Use
  Company Number: None

PATIENT
  Age: 64 Year
  Sex: Female
  Weight: 100 kg

DRUGS (6)
  1. ATRACURIUM BESYLATE [Suspect]
     Active Substance: ATRACURIUM BESYLATE
     Indication: General anaesthesia
     Dosage: 50 MG, SINGLE
     Route: 042
     Dates: start: 20210125, end: 20210125
  2. DEXAMETHASONE [Concomitant]
     Active Substance: DEXAMETHASONE
     Indication: General anaesthesia
     Dosage: 8 MG, SINGLE
     Route: 042
     Dates: start: 20210125, end: 20210125
  3. KETAMINE [Concomitant]
     Active Substance: KETAMINE
     Indication: General anaesthesia
     Dosage: 10 MG, SINGLE
     Route: 042
     Dates: start: 20210125, end: 20210125
  4. PROPOFOL [Concomitant]
     Active Substance: PROPOFOL
     Indication: General anaesthesia
     Dosage: 300 MG, SINGLE
     Route: 042
     Dates: start: 20210125, end: 20210125
  5. SUFENTANIL [Concomitant]
     Active Substance: SUFENTANIL
     Indication: General anaesthesia
     Route: 042
     Dates: start: 20210125, end: 20210125
  6. LIDOCAIN HCL [Concomitant]
     Indication: General anaesthesia
     Dosage: 20 MG, SINGLE
     Route: 042
     Dates: start: 20210125, end: 20210125

REACTIONS (2)
  - Allergy test positive [Recovered/Resolved]
  - Type I hypersensitivity [Recovered/Resolved]

NARRATIVE: CASE EVENT DATE: 20210125
